FAERS Safety Report 4602890-6 (Version None)
Quarter: 2005Q1

REPORT INFORMATION
  Report Type: 
  Country: None (occurrence: None)
  Receive Date: 20050309
  Receipt Date: 20050302
  Transmission Date: 20050727
  Serious: Yes (Hospitalization)
  Sender: FDA-Public Use
  Company Number: FR-GLAXOSMITHKLINE-B0373405A

PATIENT
  Age: 8 Year
  Sex: Male
  Weight: 31 kg

DRUGS (3)
  1. FLIXOTIDE [Suspect]
     Indication: ASTHMA
     Dosage: 50MCG TWICE PER DAY
     Route: 055
     Dates: start: 20010515, end: 20050223
  2. SEREVENT [Suspect]
     Indication: ASTHMA
     Dosage: 25MCG TWICE PER DAY
     Route: 055
  3. SOLUPRED [Concomitant]
     Indication: ASTHMA

REACTIONS (4)
  - ASTHMA [None]
  - CONDITION AGGRAVATED [None]
  - FOREARM FRACTURE [None]
  - PATHOLOGICAL FRACTURE [None]
